FAERS Safety Report 16377470 (Version 1)
Quarter: 2019Q2

REPORT INFORMATION
  Report Type: Spontaneous
  Country: US (occurrence: US)
  Receive Date: 20190531
  Receipt Date: 20190531
  Transmission Date: 20190711
  Serious: No
  Sender: FDA-Public Use
  Company Number: US-PFIZER INC-2018009518

PATIENT
  Sex: Female

DRUGS (1)
  1. LYRICA [Suspect]
     Active Substance: PREGABALIN
     Indication: NEUROPATHY PERIPHERAL
     Dosage: UNK

REACTIONS (7)
  - Hot flush [Unknown]
  - Peripheral swelling [Unknown]
  - Dry mouth [Unknown]
  - Weight increased [Unknown]
  - Flushing [Unknown]
  - Joint swelling [Unknown]
  - Vision blurred [Unknown]
